FAERS Safety Report 17767600 (Version 1)
Quarter: 2020Q2

REPORT INFORMATION
  Report Type: Spontaneous
  Country: US (occurrence: US)
  Receive Date: 20200511
  Receipt Date: 20200511
  Transmission Date: 20200714
  Serious: Yes (Other)
  Sender: FDA-Public Use
  Company Number: US-SAGENT PHARMACEUTICALS-2020SAG000902

PATIENT

DRUGS (2)
  1. FLUDARABINE PHOSPHATE. [Suspect]
     Active Substance: FLUDARABINE PHOSPHATE
     Indication: PRODUCT USED FOR UNKNOWN INDICATION
     Dosage: 58 MG, QD X 3 DAYS
     Route: 065
     Dates: start: 20200219, end: 20200221
  2. YESCARTA [Suspect]
     Active Substance: AXICABTAGENE CILOLEUCEL
     Indication: PRODUCT USED FOR UNKNOWN INDICATION
     Dosage: 2 X 10^6/KG

REACTIONS (11)
  - Cytokine release syndrome [Unknown]
  - Mental status changes [Unknown]
  - Neurotoxicity [Unknown]
  - Vision blurred [Not Recovered/Not Resolved]
  - Leukopenia [Unknown]
  - Tachycardia [Unknown]
  - Dizziness [Unknown]
  - Fatigue [Unknown]
  - Adrenal insufficiency [Unknown]
  - Asthenia [Unknown]
  - Thrombocytopenia [Unknown]

NARRATIVE: CASE EVENT DATE: 20200329
